FAERS Safety Report 12788439 (Version 1)
Quarter: 2016Q3

REPORT INFORMATION
  Report Type: Report from Study
  Country: JP (occurrence: JP)
  Receive Date: 20160928
  Receipt Date: 20160928
  Transmission Date: 20161109
  Serious: Yes (Hospitalization, Other)
  Sender: FDA-Public Use
  Company Number: JP-BRISTOL-MYERS SQUIBB COMPANY-BMS-2016-016622

PATIENT
  Age: 47 Year
  Sex: Male

DRUGS (1)
  1. NIVOLUMAB [Suspect]
     Active Substance: NIVOLUMAB
     Indication: NON-SMALL CELL LUNG CANCER
     Dosage: 3 MG/KG, QD
     Route: 041
     Dates: start: 20160215, end: 20160215

REACTIONS (6)
  - Trousseau^s syndrome [Recovering/Resolving]
  - Hyponatraemia [Not Recovered/Not Resolved]
  - Hepatic function abnormal [Recovering/Resolving]
  - Cerebral infarction [Not Recovered/Not Resolved]
  - Endocarditis [Not Recovered/Not Resolved]
  - Decreased appetite [Unknown]

NARRATIVE: CASE EVENT DATE: 20160227
